FAERS Safety Report 6881775-9 (Version None)
Quarter: 2010Q3

REPORT INFORMATION
  Report Type: 
  Country: None (occurrence: None)
  Receive Date: 20100729
  Receipt Date: 20100720
  Transmission Date: 20110219
  Serious: Yes (Other)
  Sender: FDA-Public Use
  Company Number: US-PFIZER INC-2010091603

PATIENT
  Sex: Female
  Weight: 49.9 kg

DRUGS (2)
  1. SUTENT [Suspect]
     Indication: RENAL CELL CARCINOMA
     Dosage: 50 MG, 1X/DAY, 4/2 WEEKS CYCLE
     Route: 048
     Dates: start: 20100601
  2. LOPRESSOR [Concomitant]
     Indication: HYPERTENSION
     Dosage: 25 MG, 3X/DAY
     Route: 048

REACTIONS (4)
  - HYPERTENSION [None]
  - LYMPHADENOPATHY [None]
  - PALMAR-PLANTAR ERYTHRODYSAESTHESIA SYNDROME [None]
  - TEMPOROMANDIBULAR JOINT SYNDROME [None]
